FAERS Safety Report 8313753-7 (Version None)
Quarter: 2012Q2

REPORT INFORMATION
  Report Type: 
  Country: None (occurrence: None)
  Receive Date: 20120426
  Receipt Date: 20110808
  Transmission Date: 20120825
  Serious: Yes (Other)
  Sender: FDA-Public Use
  Company Number: US-TEVA-US019832

PATIENT
  Age: 50 Year
  Sex: Female

DRUGS (11)
  1. ALLEGRA [Concomitant]
     Dosage: 180 MILLIGRAM;
     Route: 065
  2. FLONASE [Concomitant]
     Route: 065
  3. ADVAIR DISKUS 100/50 [Concomitant]
     Dosage: 200 MILLIGRAM;
     Route: 065
  4. ACTONEL [Concomitant]
     Dosage: 5 MILLIGRAM;
     Route: 065
  5. CIMETIDINE [Concomitant]
     Dosage: 800 MILLIGRAM;
     Route: 065
  6. MAXAIR [Concomitant]
     Route: 065
  7. EPIPEN [Concomitant]
     Route: 065
  8. PREDNISONE TAB [Concomitant]
     Dosage: 2.5 MILLIGRAM;
     Route: 065
  9. PROVIGIL [Suspect]
     Indication: COGNITIVE DISORDER
     Route: 048
  10. BENADRYL [Concomitant]
     Indication: ANAPHYLACTIC REACTION
     Dosage: 50 MG TID/100 MG QHS
     Route: 065
  11. ACCOLATE [Concomitant]
     Dosage: 40 MILLIGRAM;
     Route: 065

REACTIONS (6)
  - NEGATIVISM [None]
  - IRRITABILITY [None]
  - APATHY [None]
  - SUICIDAL IDEATION [None]
  - DEPRESSION [None]
  - DRUG INEFFECTIVE FOR UNAPPROVED INDICATION [None]
